FAERS Safety Report 12663928 (Version 1)
Quarter: 2016Q3

REPORT INFORMATION
  Report Type: Spontaneous
  Country: CN (occurrence: CN)
  Receive Date: 20160818
  Receipt Date: 20160818
  Transmission Date: 20161109
  Serious: Yes (Hospitalization)
  Sender: FDA-Public Use
  Company Number: CN-PFIZER INC-2016388594

PATIENT
  Age: 75 Year
  Sex: Female
  Weight: 62 kg

DRUGS (5)
  1. ETHAMBUTOL HYDROCHLORIDE. [Suspect]
     Active Substance: ETHAMBUTOL HYDROCHLORIDE
     Indication: PULMONARY TUBERCULOSIS
     Dosage: 0.75 G, DAILY
     Route: 048
     Dates: start: 20160418, end: 20160425
  2. AMINOSALICYLATE SODIUM W/ISONIAZID [Suspect]
     Active Substance: AMINOSALICYLATE SODIUM\ISONIAZID
     Indication: PULMONARY TUBERCULOSIS
     Dosage: 0.3 G, 3X/DAY
     Route: 048
     Dates: start: 20160418, end: 20160425
  3. RIFAPENTINE [Suspect]
     Active Substance: RIFAPENTINE
     Indication: PULMONARY TUBERCULOSIS
     Dosage: 0.45 G, EVERY 7 DAYS
     Dates: start: 20160418, end: 20160424
  4. CELECOXIB. [Suspect]
     Active Substance: CELECOXIB
     Indication: RHEUMATOID ARTHRITIS
     Dosage: 0.2 G, 2X/DAY
     Route: 048
     Dates: start: 20160420, end: 20160425
  5. SILYBIN MEGLUMINE [Concomitant]
     Indication: PROPHYLAXIS

REACTIONS (6)
  - Asthenia [Recovering/Resolving]
  - Nausea [Recovering/Resolving]
  - Decreased appetite [Recovering/Resolving]
  - Aspartate aminotransferase increased [None]
  - Hepatic function abnormal [Recovering/Resolving]
  - Alanine aminotransferase increased [None]

NARRATIVE: CASE EVENT DATE: 20160424
